FAERS Safety Report 7927251-3 (Version None)
Quarter: 2011Q4

REPORT INFORMATION
  Report Type: 
  Country: None (occurrence: None)
  Receive Date: 20111118
  Receipt Date: 20111116
  Transmission Date: 20120403
  Serious: Yes (Other)
  Sender: FDA-Public Use
  Company Number: FR-ABBOTT-11P-056-0874690-00

PATIENT
  Sex: Female

DRUGS (3)
  1. KETOPROFEN [Concomitant]
     Indication: PRODUCT USED FOR UNKNOWN INDICATION
     Dosage: OCCASIONALLY
  2. HUMIRA [Suspect]
     Indication: PRODUCT USED FOR UNKNOWN INDICATION
     Route: 058
     Dates: start: 20100122, end: 20110128
  3. HUMIRA [Suspect]
     Route: 058
     Dates: start: 20110225, end: 20110311

REACTIONS (2)
  - NEUTROPENIA [None]
  - INFECTION [None]
